FAERS Safety Report 18705675 (Version 2)
Quarter: 2021Q1

REPORT INFORMATION
  Report Type: Spontaneous
  Country: TR (occurrence: TR)
  Receive Date: 20210106
  Receipt Date: 20210127
  Transmission Date: 20210419
  Serious: Yes (Hospitalization, Other)
  Sender: FDA-Public Use
  Company Number: NVSC2020TR346662

PATIENT
  Age: 58 Year
  Sex: Male

DRUGS (3)
  1. VERXANT [Suspect]
     Active Substance: SECUKINUMAB
     Indication: PSORIASIS
  2. VERXANT [Suspect]
     Active Substance: SECUKINUMAB
     Indication: PSORIATIC ARTHROPATHY
     Dosage: 300 MG, QMO (MONTHLY)
     Route: 065
     Dates: start: 202010
  3. ATACAND PLUS [Concomitant]
     Active Substance: CANDESARTAN CILEXETIL\HYDROCHLOROTHIAZIDE
     Indication: HYPERTENSION
     Dosage: UNK
     Route: 065

REACTIONS (9)
  - Aphasia [Recovered/Resolved]
  - Disturbance in attention [Not Recovered/Not Resolved]
  - Cerebrovascular accident [Unknown]
  - Emotional disorder [Not Recovered/Not Resolved]
  - Dizziness [Recovered/Resolved]
  - Balance disorder [Recovered/Resolved]
  - Speech disorder [Recovered/Resolved]
  - Speech disorder [Recovered/Resolved]
  - Cerebral infarction [Unknown]

NARRATIVE: CASE EVENT DATE: 20201024
